FAERS Safety Report 9023674 (Version 1)
Quarter: 2013Q1

REPORT INFORMATION
  Report Type: Report from Study
  Country: DE (occurrence: DE)
  Receive Date: 20130121
  Receipt Date: 20130121
  Transmission Date: 20140127
  Serious: Yes (Death)
  Sender: FDA-Public Use
  Company Number: DE-ASTELLAS-2013US000711

PATIENT
  Age: 58 Year
  Sex: Female
  Weight: 83 kg

DRUGS (13)
  1. ERLOTINIB [Suspect]
     Indication: BRONCHIAL CARCINOMA
     Dosage: 150 MG, UNKNOWN/D
     Route: 048
     Dates: start: 20110527
  2. BEVACIZUMAB [Suspect]
     Indication: BRONCHIAL CARCINOMA
     Dosage: 15 MG/KG, UNKNOWN/D
     Route: 042
     Dates: start: 20110527
  3. GADOPENTATE DIMEGLUMINE [Suspect]
     Indication: BRONCHIAL CARCINOMA
     Dosage: UNK
     Route: 042
     Dates: start: 20110526
  4. FLUOROTHYMIDINE [Suspect]
     Indication: BRONCHIAL CARCINOMA
     Dosage: UNK
     Route: 042
     Dates: start: 20110525
  5. FLUORODEOXYGLUCOSE F 18 [Suspect]
     Indication: BRONCHIAL CARCINOMA
     Dosage: UNK
     Route: 042
     Dates: start: 20110527
  6. AMOCLAV                            /02043401/ [Concomitant]
     Indication: PRODUCT USED FOR UNKNOWN INDICATION
     Dosage: 875/150  MG, UID/QD
     Route: 065
     Dates: start: 20130103, end: 20130112
  7. PANTOZOL [Concomitant]
     Indication: PRODUCT USED FOR UNKNOWN INDICATION
     Dosage: 40 MG, UNKNOWN/D  (1 IN 1 D)
     Route: 065
     Dates: start: 20111021, end: 20130112
  8. DIPYRONE [Concomitant]
     Indication: PRODUCT USED FOR UNKNOWN INDICATION
     Dosage: 5X/D (1 IN 1 D)
     Route: 065
     Dates: end: 20130112
  9. IBUPROFEN [Concomitant]
     Indication: PRODUCT USED FOR UNKNOWN INDICATION
     Dosage: 1800 MG, UNKNOWN/D  (1 IN 1 D)
     Route: 065
     Dates: start: 20130103, end: 20130112
  10. HCT BETA [Concomitant]
     Indication: PRODUCT USED FOR UNKNOWN INDICATION
     Dosage: 12.5 MG, UNKNOWN/D  (1 IN 1 D)
     Route: 065
     Dates: start: 20130103, end: 20130112
  11. SPIRONOLACTON [Concomitant]
     Indication: PRODUCT USED FOR UNKNOWN INDICATION
     Dosage: 12.5 MG, UNKNOWN/D (1 IN 1 D)
     Route: 065
     Dates: start: 20130103, end: 20130112
  12. MCP [Concomitant]
     Indication: PRODUCT USED FOR UNKNOWN INDICATION
     Dosage: UNK (1 IN 1 D)
     Route: 065
     Dates: start: 20110713, end: 20130112
  13. TILIDIN [Concomitant]
     Indication: PRODUCT USED FOR UNKNOWN INDICATION
     Dosage: 10 DF, UNKNOWN/D  (1 IN 1 D)
     Route: 065
     Dates: start: 20130103, end: 20130112

REACTIONS (1)
  - Sudden death [Fatal]
